FAERS Safety Report 5859100-1 (Version None)
Quarter: 2008Q3

REPORT INFORMATION
  Report Type: 
  Country: None (occurrence: None)
  Receive Date: 20080825
  Receipt Date: 20080812
  Transmission Date: 20090109
  Serious: Yes (Hospitalization)
  Sender: FDA-Public Use
  Company Number: CLOF-1000261

PATIENT
  Age: 58 Year
  Sex: Male

DRUGS (3)
  1. CLOFARABINE (CLOFARABINE) SOLUTION FOR INFUSION [Suspect]
     Indication: MYELOID LEUKAEMIA
     Dosage: INTRAVENOUS
     Route: 042
     Dates: start: 20080618
  2. DAUNORUBICIN (DAUNORUBICIN) SOLUTION FOR INFUSION [Suspect]
     Indication: MYELOID LEUKAEMIA
     Dosage: INTRAVENOUS
     Route: 042
     Dates: start: 20080618
  3. MYLOTARG (GEMTUZUMAB OZOGAMICIN) SOLUTION FOR INFUSION [Suspect]
     Indication: MYELOID LEUKAEMIA
     Dosage: INTRAVENOUS
     Route: 042
     Dates: start: 20080618

REACTIONS (4)
  - FUNGAL INFECTION [None]
  - LUNG INFECTION [None]
  - PANCYTOPENIA [None]
  - PULMONARY NECROSIS [None]
